FAERS Safety Report 25509876 (Version 1)
Quarter: 2025Q3

REPORT INFORMATION
  Report Type: Spontaneous
  Country: US (occurrence: None)
  Receive Date: 20250702
  Receipt Date: 20250702
  Transmission Date: 20251021
  Serious: Yes (Life-Threatening)
  Sender: FDA-CTU
  Company Number: None

PATIENT

DRUGS (1)
  1. ZOLOFT [Suspect]
     Active Substance: SERTRALINE HYDROCHLORIDE

REACTIONS (9)
  - Drug withdrawal syndrome neonatal [None]
  - Drug dependence, postpartum [None]
  - Poor feeding infant [None]
  - Ear deformity acquired [None]
  - Speech disorder developmental [None]
  - Dehydration [None]
  - Foetal exposure during pregnancy [None]
  - Exposure during pregnancy [None]
  - Maternal drugs affecting foetus [None]
